FAERS Safety Report 5385874-2 (Version None)
Quarter: 2007Q3

REPORT INFORMATION
  Report Type: 
  Country: None (occurrence: None)
  Receive Date: 20070712
  Receipt Date: 20070627
  Transmission Date: 20080115
  Serious: Yes (Other)
  Sender: FDA-Public Use
  Company Number: GB-BOEHRINGER INGELHEIM PHARMACEUTICALS, INC.-2007-BP-17141YA

PATIENT
  Sex: Male
  Weight: 79 kg

DRUGS (2)
  1. FLOMAX [Suspect]
     Indication: BENIGN PROSTATIC HYPERPLASIA
     Route: 048
     Dates: start: 20070402
  2. ANAESTHETICS, LOCAL [Concomitant]
     Dates: start: 20070626, end: 20070626

REACTIONS (3)
  - CHILLS [None]
  - FEELING COLD [None]
  - PAIN [None]
